FAERS Safety Report 7844944-7 (Version None)
Quarter: 2011Q4

REPORT INFORMATION
  Report Type: 
  Country: None (occurrence: None)
  Receive Date: 20111025
  Receipt Date: 20111013
  Transmission Date: 20120403
  Serious: Yes (Hospitalization, Other)
  Sender: FDA-Public Use
  Company Number: US-BAYER-2011-052132

PATIENT
  Age: 23 Year
  Sex: Female
  Weight: 76.644 kg

DRUGS (15)
  1. DROSPIRENONE AND ETHINYL ESTRADIOL [Suspect]
  2. NEXIUM [Concomitant]
     Indication: GASTROOESOPHAGEAL REFLUX DISEASE
     Dosage: 5 MG, QID
     Dates: start: 20070814, end: 20090310
  3. AZITHROMYCIN [Concomitant]
     Dosage: 250 MG, UNK
  4. FLORASTOR [Concomitant]
  5. YAZ [Suspect]
     Indication: CONTRACEPTION
     Dosage: UNK
     Dates: start: 20070101, end: 20080101
  6. YASMIN [Suspect]
     Indication: CONTRACEPTION
     Dosage: UNK
     Dates: start: 20070101, end: 20080101
  7. PROPOXYPHENE NAPSYLATE W/ ACETAMINOPHEN [Concomitant]
  8. YAZ [Suspect]
  9. AMOXICILLIN [Concomitant]
     Dosage: 500 MG, UNK
  10. YASMIN [Suspect]
     Indication: PREMENSTRUAL SYNDROME
  11. DROSPIRENONE AND ETHINYL ESTRADIOL [Suspect]
     Indication: PREMENSTRUAL SYNDROME
  12. YAZ [Suspect]
     Indication: PREMENSTRUAL SYNDROME
  13. YASMIN [Suspect]
  14. DROSPIRENONE AND ETHINYL ESTRADIOL [Suspect]
     Indication: CONTRACEPTION
     Dosage: UNK
     Dates: start: 20070101, end: 20080101
  15. ERYTHROMYCIN [Concomitant]

REACTIONS (10)
  - DYSPEPSIA [None]
  - INJURY [None]
  - PAIN [None]
  - CHOLECYSTITIS CHRONIC [None]
  - BILIARY COLIC [None]
  - MENTAL DISORDER [None]
  - CRYING [None]
  - DIARRHOEA [None]
  - POST GASTRIC SURGERY SYNDROME [None]
  - DEPRESSION [None]
